FAERS Safety Report 5362956-2 (Version None)
Quarter: 2007Q2

REPORT INFORMATION
  Report Type: 
  Country: None (occurrence: None)
  Receive Date: 20070615
  Receipt Date: 20070605
  Transmission Date: 20071010
  Serious: Yes (Death)
  Sender: FDA-Public Use
  Company Number: A-CH2007-15398

PATIENT
  Age: 30 Year
  Sex: Male

DRUGS (3)
  1. TRACLEER [Suspect]
     Indication: PULMONARY HYPERTENSION
     Dosage: SEE IMAGE
     Route: 048
     Dates: start: 20060429, end: 20070502
  2. PRILOSEC [Concomitant]
  3. MOTILIUM [Concomitant]

REACTIONS (1)
  - BRAIN ABSCESS [None]
